FAERS Safety Report 19617482 (Version 4)
Quarter: 2021Q3

REPORT INFORMATION
  Report Type: Spontaneous
  Country: ES (occurrence: ES)
  Receive Date: 20210728
  Receipt Date: 20210916
  Transmission Date: 20211014
  Serious: Yes (Other)
  Sender: FDA-Public Use
  Company Number: ES-AUROBINDO-AUR-APL-2021-031996

PATIENT
  Age: 72 Year
  Sex: Female
  Weight: 80 kg

DRUGS (6)
  1. INSULIN GLARGINE [Suspect]
     Active Substance: INSULIN GLARGINE
     Indication: TYPE 2 DIABETES MELLITUS
     Dosage: UNK (DOSE INCREASED)
     Route: 058
  2. APIDRA [Suspect]
     Active Substance: INSULIN GLULISINE
     Dosage: 20 INTERNATIONAL UNIT, 3 TIMES A DAY
     Route: 058
  3. INSULIN GLARGINE [Suspect]
     Active Substance: INSULIN GLARGINE
     Dosage: 20 INTERNATIONAL UNIT, ONCE A DAY
     Route: 058
     Dates: start: 2018
  4. DIANBEN [Concomitant]
     Active Substance: METFORMIN HYDROCHLORIDE
     Indication: TYPE 2 DIABETES MELLITUS
     Dosage: 1 DOSAGE FORM, TWO TIMES A DAY
     Route: 048
  5. APIDRA [Suspect]
     Active Substance: INSULIN GLULISINE
     Indication: TYPE 2 DIABETES MELLITUS
     Dosage: UNK (ACCORDING TO BLOOD GLUCOSE LEVELS)
     Route: 058
  6. METFORMIN FILM?COATED TABLET [Suspect]
     Active Substance: METFORMIN HYDROCHLORIDE
     Indication: TYPE 2 DIABETES MELLITUS
     Dosage: 1 DOSAGE FORM, TWO TIMES A DAY
     Route: 048

REACTIONS (11)
  - Product storage error [Unknown]
  - Blood glucose decreased [Recovered/Resolved]
  - Hyperglycaemia [Recovering/Resolving]
  - Head discomfort [Unknown]
  - Weight fluctuation [Unknown]
  - Hyperhidrosis [Recovered/Resolved]
  - Fear [Recovered/Resolved]
  - Blood glucose increased [Not Recovered/Not Resolved]
  - Confusional state [Recovering/Resolving]
  - Tremor [Recovered/Resolved]
  - Hypoglycaemia [Recovered/Resolved]

NARRATIVE: CASE EVENT DATE: 20210818
